FAERS Safety Report 5633564-0 (Version None)
Quarter: 2008Q1

REPORT INFORMATION
  Report Type: 
  Country: None (occurrence: None)
  Receive Date: 20080221
  Receipt Date: 20080211
  Transmission Date: 20080703
  Serious: Yes (Other)
  Sender: FDA-Public Use
  Company Number: NZ-PFIZER INC-2008013302

PATIENT
  Age: 59 Year
  Sex: Male

DRUGS (7)
  1. RIFABUTIN [Suspect]
     Indication: MYCOBACTERIUM AVIUM COMPLEX INFECTION
     Route: 048
  2. ZIDOVUDINE [Concomitant]
  3. LAMIVUDINE [Concomitant]
  4. INDINIVIR SULFATE [Concomitant]
  5. RITONAVIR [Concomitant]
  6. CIPROFLOXACIN [Concomitant]
  7. ETHAMBUTOL HYDROCHLORIDE [Concomitant]

REACTIONS (3)
  - OSTEOMALACIA [None]
  - PATHOLOGICAL FRACTURE [None]
  - VITAMIN D DEFICIENCY [None]
